FAERS Safety Report 24625754 (Version 1)
Quarter: 2024Q4

REPORT INFORMATION
  Report Type: Spontaneous
  Country: US (occurrence: US)
  Receive Date: 20241115
  Receipt Date: 20241115
  Transmission Date: 20250115
  Serious: No
  Sender: DR REDDYS
  Company Number: US-DRL-USA-SPO/USA/24/0016706

PATIENT
  Age: 72 Year
  Sex: Female
  Weight: 64.41 kg

DRUGS (1)
  1. FLUOROURACIL [Suspect]
     Active Substance: FLUOROURACIL
     Indication: Precancerous skin lesion
     Route: 061
     Dates: start: 20201229, end: 20210114

REACTIONS (2)
  - Drug ineffective [Unknown]
  - Therapy cessation [Unknown]
